FAERS Safety Report 8500037-7 (Version None)
Quarter: 2012Q3

REPORT INFORMATION
  Report Type: 
  Country: None (occurrence: None)
  Receive Date: 20120703
  Receipt Date: 20120703
  Transmission Date: 20120928
  Serious: Yes (Hospitalization)
  Sender: FDA-Public Use
  Company Number: None

PATIENT
  Sex: Male
  Weight: 83.9154 kg

DRUGS (1)
  1. OLANZAPINE [Suspect]
     Indication: SCHIZOPHRENIA, PARANOID TYPE
     Dosage: 1 BID PO
     Route: 048
     Dates: start: 20111201, end: 20111201

REACTIONS (5)
  - SUICIDE ATTEMPT [None]
  - PARANOIA [None]
  - PRODUCT SUBSTITUTION ISSUE [None]
  - PSYCHIATRIC DECOMPENSATION [None]
  - ANXIETY [None]
